FAERS Safety Report 8314522-4 (Version None)
Quarter: 2012Q2

REPORT INFORMATION
  Report Type: 
  Country: None (occurrence: None)
  Receive Date: 20120426
  Receipt Date: 20120418
  Transmission Date: 20120825
  Serious: Yes (Other)
  Sender: FDA-Public Use
  Company Number: US-ABBOTT-12P-163-0925933-00

PATIENT
  Sex: Female
  Weight: 99.88 kg

DRUGS (4)
  1. OXYBUTYNIN [Concomitant]
     Indication: INCONTINENCE
  2. MOBIC [Concomitant]
     Indication: OSTEOARTHRITIS
  3. ENBREL [Suspect]
     Indication: PSORIASIS
     Dates: start: 20060101, end: 20100101
  4. HUMIRA [Suspect]
     Indication: PSORIASIS
     Route: 058
     Dates: start: 20100201

REACTIONS (5)
  - OROPHARYNGEAL PAIN [None]
  - SINUSITIS [None]
  - OSTEOARTHRITIS [None]
  - MULTIPLE ALLERGIES [None]
  - NASOPHARYNGITIS [None]
